FAERS Safety Report 7284060-9 (Version None)
Quarter: 2011Q1

REPORT INFORMATION
  Report Type: 
  Country: None (occurrence: None)
  Receive Date: 20110209
  Receipt Date: 20110202
  Transmission Date: 20110831
  Serious: Yes (Other)
  Sender: FDA-Public Use
  Company Number: US-SANOFI-AVENTIS-2011SA007065

PATIENT
  Age: 63 Year
  Sex: Male

DRUGS (2)
  1. LANTUS [Suspect]
     Indication: TYPE 2 DIABETES MELLITUS
     Dosage: DOSE:36 UNIT(S)
     Route: 058
     Dates: start: 20100501
  2. SOLOSTAR [Suspect]
     Dates: start: 20100501

REACTIONS (3)
  - MYOCARDIAL INFARCTION [None]
  - INTESTINAL FUNCTIONAL DISORDER [None]
  - INJECTION SITE HAEMATOMA [None]
